FAERS Safety Report 7297858-8 (Version None)
Quarter: 2011Q1

REPORT INFORMATION
  Report Type: 
  Country: None (occurrence: None)
  Receive Date: 20110217
  Receipt Date: 20101119
  Transmission Date: 20110831
  Serious: No
  Sender: FDA-Public Use
  Company Number: US-KINGPHARMUSA00001-K201001416

PATIENT
  Age: 59 Year
  Sex: Female
  Weight: 47.166 kg

DRUGS (8)
  1. PREMARIN [Concomitant]
  2. CELEBREX [Concomitant]
  3. NEURONTIN [Concomitant]
  4. FLECTOR [Suspect]
     Indication: BACK PAIN
  5. FLECTOR [Suspect]
     Indication: NECK PAIN
     Dosage: 1 PATCH, PRN
     Route: 061
     Dates: start: 20100601, end: 20101029
  6. METHADONE HYDROCHLORIDE [Concomitant]
  7. VALIUM [Concomitant]
  8. MULTI-VITAMINS [Concomitant]

REACTIONS (5)
  - APPLICATION SITE PRURITUS [None]
  - WOUND SECRETION [None]
  - APPLICATION SITE SCAB [None]
  - APPLICATION SITE PAIN [None]
  - APPLICATION SITE VESICLES [None]
